FAERS Safety Report 8764348 (Version 1)
Quarter: 2012Q4

REPORT INFORMATION
  Report Type: 
  Country: BR (occurrence: BR)
  Receive Date: 20120831
  Receipt Date: 20120831
  Transmission Date: 20130627
  Serious: Yes (Other)
  Sender: FDA-Public Use
  Company Number: PHHY2012BR071520

PATIENT
  Age: 33 Year
  Sex: Male
  Weight: 65 kg

DRUGS (4)
  1. INFLUENZA VACCINE [Suspect]
     Dosage: UNK UKN, UNK
     Dates: start: 201204
  2. TIOTROPIUM [Concomitant]
     Dosage: 5 ug, QD
  3. FORASEQ [Suspect]
     Dosage: 12/ 400 mcg
     Dates: start: 201203
  4. ONBREZ [Suspect]
     Indication: CHRONIC OBSTRUCTIVE PULMONARY DISEASE
     Dosage: 300 ug, QD
     Route: 048

REACTIONS (8)
  - Obstructive airways disorder [Recovering/Resolving]
  - Dyspnoea [Recovering/Resolving]
  - Lung hyperinflation [Recovering/Resolving]
  - Gait disturbance [Recovering/Resolving]
  - Oxygen saturation decreased [Recovering/Resolving]
  - Total lung capacity decreased [Recovering/Resolving]
  - Cardiovascular disorder [Recovering/Resolving]
  - Left ventricular dysfunction [Recovering/Resolving]
